FAERS Safety Report 19077311 (Version 1)
Quarter: 2021Q1

REPORT INFORMATION
  Report Type: Spontaneous
  Country: US (occurrence: US)
  Receive Date: 20210330
  Receipt Date: 20210330
  Transmission Date: 20210420
  Serious: Yes (Death, Hospitalization)
  Sender: FDA-Public Use
  Company Number: None

PATIENT
  Age: 72 Year
  Sex: Female

DRUGS (2)
  1. TRACLEER [Suspect]
     Active Substance: BOSENTAN
     Indication: PULMONARY HYPERTENSION
     Route: 048
     Dates: start: 20190604, end: 20210325
  2. SILDENAFIL. [Suspect]
     Active Substance: SILDENAFIL

REACTIONS (9)
  - Pulmonary arterial pressure increased [None]
  - Right ventricular failure [None]
  - Chest pain [None]
  - Dyspnoea [None]
  - Cardiac failure [None]
  - Pulseless electrical activity [None]
  - Renal failure [None]
  - Cardiac arrest [None]
  - Blood pressure systolic decreased [None]

NARRATIVE: CASE EVENT DATE: 20210325
